FAERS Safety Report 4673148-4 (Version None)
Quarter: 2005Q2

REPORT INFORMATION
  Report Type: 
  Country: None (occurrence: None)
  Receive Date: 20050525
  Receipt Date: 20050518
  Transmission Date: 20051028
  Serious: Yes (Other)
  Sender: FDA-Public Use
  Company Number: 200514538GDDC

PATIENT
  Age: 67 Year
  Sex: Male
  Weight: 76 kg

DRUGS (3)
  1. TAXOTERE [Suspect]
     Route: 042
     Dates: start: 20041130, end: 20041130
  2. DEXAMETHASONE [Concomitant]
     Dates: start: 20041130
  3. NAVOBAN [Concomitant]
     Dates: start: 20041130

REACTIONS (5)
  - COMA [None]
  - DYSPNOEA [None]
  - EMOTIONAL DISTRESS [None]
  - FLUSHING [None]
  - HYPOTENSION [None]
